FAERS Safety Report 24685949 (Version 6)
Quarter: 2025Q1

REPORT INFORMATION
  Report Type: Spontaneous
  Country: GB (occurrence: GB)
  Receive Date: 20241202
  Receipt Date: 20250319
  Transmission Date: 20250408
  Serious: No
  Sender: PFIZER
  Company Number: GB-PFIZER INC-PV202400153253

PATIENT
  Age: 17 Year
  Sex: Female

DRUGS (1)
  1. GENOTROPIN [Suspect]
     Active Substance: SOMATROPIN
     Indication: Growth hormone deficiency
     Dosage: 1.4 MG, DAILY
     Route: 058

REACTIONS (5)
  - Device leakage [Unknown]
  - Device physical property issue [Unknown]
  - Liquid product physical issue [Unknown]
  - Device failure [Unknown]
  - Drug dose omission by device [Unknown]
